FAERS Safety Report 4732987-1 (Version None)
Quarter: 2005Q3

REPORT INFORMATION
  Report Type: 
  Country: None (occurrence: None)
  Receive Date: 20050803
  Receipt Date: 20050722
  Transmission Date: 20060218
  Serious: Yes (Death, Life-Threatening, Hospitalization, Disabling)
  Sender: FDA-Public Use
  Company Number: US-KINGPHARMUSA00001-K200500989

PATIENT
  Age: 91 Year
  Sex: Male

DRUGS (4)
  1. ALTACE [Suspect]
     Indication: CARDIAC FAILURE CONGESTIVE
     Dosage: 10 MG, QD
     Route: 048
     Dates: start: 20050304, end: 20050415
  2. SPIRONOLACTONE [Suspect]
     Dosage: 25 MG, QD
     Route: 048
     Dates: start: 20050304, end: 20050415
  3. AMOXICILLIN [Concomitant]
     Indication: LOWER RESPIRATORY TRACT INFECTION
     Dosage: 250 MG, UNK
     Dates: start: 20050404, end: 20050503
  4. CO-DYDRAMOL [Concomitant]
     Indication: OSTEOARTHRITIS
     Dosage: 2-6 HOURLY
     Dates: end: 20050503

REACTIONS (3)
  - HYPERKALAEMIA [None]
  - MYOCARDIAL INFARCTION [None]
  - RENAL FAILURE ACUTE [None]
